FAERS Safety Report 18873071 (Version 1)
Quarter: 2021Q1

REPORT INFORMATION
  Report Type: Spontaneous
  Country: FR (occurrence: FR)
  Receive Date: 20210210
  Receipt Date: 20210210
  Transmission Date: 20210420
  Serious: Yes (Other)
  Sender: FDA-Public Use
  Company Number: FR-MYLANLABS-2021M1008108

PATIENT
  Age: 41 Year
  Sex: Female

DRUGS (2)
  1. CIPROFLOXACIN. [Suspect]
     Active Substance: CIPROFLOXACIN
     Indication: ALLERGY TEST
     Dosage: 1 DOSAGE FORM, TOTAL
     Route: 023
     Dates: start: 20191025, end: 20191025
  2. LEVOFLOXACIN. [Suspect]
     Active Substance: LEVOFLOXACIN
     Indication: ALLERGY TEST
     Dosage: 1 DOSAGE FORM, TOTAL
     Route: 023
     Dates: start: 20191025, end: 20191025

REACTIONS (3)
  - Laryngeal oedema [Recovered/Resolved]
  - Allergy test positive [Recovered/Resolved]
  - Nausea [Recovered/Resolved]

NARRATIVE: CASE EVENT DATE: 20191025
